FAERS Safety Report 9230420 (Version 2)
Quarter: 2013Q2

REPORT INFORMATION
  Report Type: Report from Study
  Country: CO (occurrence: CO)
  Receive Date: 20130415
  Receipt Date: 20130422
  Transmission Date: 20140414
  Serious: Yes (Death, Hospitalization)
  Sender: FDA-Public Use
  Company Number: PHHY2013CO035934

PATIENT
  Age: 69 Year
  Sex: Male

DRUGS (1)
  1. EXJADE [Suspect]
     Indication: SICKLE CELL ANAEMIA
     Dosage: 500 MG, UNK
     Route: 048
     Dates: start: 20120605

REACTIONS (2)
  - Sickle cell anaemia [Fatal]
  - Speech disorder [Unknown]
